FAERS Safety Report 17974180 (Version 1)
Quarter: 2020Q3

REPORT INFORMATION
  Report Type: Spontaneous
  Country: US (occurrence: US)
  Receive Date: 20200702
  Receipt Date: 20200702
  Transmission Date: 20201103
  Serious: Yes (Hospitalization)
  Sender: FDA-Public Use
  Company Number: US-AMNEAL PHARMACEUTICALS-2020-AMRX-00870

PATIENT
  Sex: Male

DRUGS (3)
  1. VIGABATRIN. [Suspect]
     Active Substance: VIGABATRIN
     Indication: INFANTILE SPASMS
     Dosage: 750 MILLIGRAM, BID
     Route: 048
  2. VIGABATRIN. [Suspect]
     Active Substance: VIGABATRIN
     Dosage: 1000 MILLIGRAM, BID
     Route: 048
  3. VIGABATRIN. [Suspect]
     Active Substance: VIGABATRIN
     Indication: EPILEPSY
     Dosage: 1000 MILLIGRAM, BID
     Route: 048

REACTIONS (2)
  - Seizure [Unknown]
  - Coma [Unknown]
